FAERS Safety Report 24642463 (Version 1)
Quarter: 2024Q4

REPORT INFORMATION
  Report Type: Report from Study
  Country: CA (occurrence: CA)
  Receive Date: 20241120
  Receipt Date: 20241120
  Transmission Date: 20250115
  Serious: Yes (Hospitalization, Other)
  Sender: BIOVITRUM
  Company Number: CA-BIOVITRUM-2024-CA-012786

PATIENT
  Age: 75 Year
  Sex: Female

DRUGS (1)
  1. KINERET [Suspect]
     Active Substance: ANAKINRA
     Indication: Rheumatoid arthritis
     Dosage: 100 MG, DAILY
     Route: 058
     Dates: start: 20240717

REACTIONS (9)
  - Pulmonary oedema [Unknown]
  - Cellulitis [Recovered/Resolved]
  - Chills [Unknown]
  - Diarrhoea [Unknown]
  - Pyrexia [Unknown]
  - Gastrointestinal infection [Unknown]
  - Spinal fracture [Unknown]
  - Weight bearing difficulty [Unknown]
  - Drug ineffective [Unknown]
